FAERS Safety Report 10041336 (Version 1)
Quarter: 2014Q1

REPORT INFORMATION
  Report Type: Spontaneous
  Country: US (occurrence: US)
  Receive Date: 20140327
  Receipt Date: 20140327
  Transmission Date: 20141002
  Serious: No
  Sender: FDA-Public Use
  Company Number: US-009507513-1403USA012385

PATIENT
  Sex: Male

DRUGS (7)
  1. PROVENTIL [Suspect]
     Dosage: UNK, PRN
     Route: 055
     Dates: start: 20140225
  2. TERAZOSIN HYDROCHLORIDE [Concomitant]
  3. ATORVASTATIN [Concomitant]
  4. CITALOPRAM [Concomitant]
  5. VITAMINS (UNSPECIFIED) [Concomitant]
  6. PREDNISONE [Concomitant]
  7. FOLIC ACID [Concomitant]

REACTIONS (4)
  - Dyspnoea [Recovering/Resolving]
  - Fatigue [Recovering/Resolving]
  - Drug dose omission [Unknown]
  - Product quality issue [Unknown]
